FAERS Safety Report 5604655-5 (Version None)
Quarter: 2008Q1

REPORT INFORMATION
  Report Type: 
  Country: None (occurrence: None)
  Receive Date: 20080123
  Receipt Date: 20080107
  Transmission Date: 20080703
  Serious: Yes (Death, Hospitalization)
  Sender: FDA-Public Use
  Company Number: PAR_02037_2008

PATIENT
  Age: 45 Year
  Sex: Female

DRUGS (2)
  1. ZOLPIDEM [Suspect]
     Indication: DRUG USE FOR UNKNOWN INDICATION
     Dosage: (DF ORAL)
     Route: 048
  2. DILTIAZEM [Suspect]
     Indication: DRUG USE FOR UNKNOWN INDICATION
     Dosage: (DF ORAL)
     Route: 048

REACTIONS (7)
  - ANOXIC ENCEPHALOPATHY [None]
  - CARDIAC ARREST [None]
  - COMPLETED SUICIDE [None]
  - HYPOTENSION [None]
  - OVERDOSE [None]
  - POISONING [None]
  - RESPIRATORY ARREST [None]
